FAERS Safety Report 22281159 (Version 1)
Quarter: 2023Q2

REPORT INFORMATION
  Report Type: Spontaneous
  Country: US (occurrence: US)
  Receive Date: 20230504
  Receipt Date: 20230504
  Transmission Date: 20230721
  Serious: Yes (Hospitalization)
  Sender: FDA-Public Use
  Company Number: US-BRISTOL-MYERS SQUIBB COMPANY-2023-062230

PATIENT
  Age: 72 Year
  Sex: Female

DRUGS (4)
  1. ELIQUIS [Suspect]
     Active Substance: APIXABAN
     Indication: Cerebrovascular accident prophylaxis
     Route: 048
     Dates: start: 201912
  2. ELIQUIS [Suspect]
     Active Substance: APIXABAN
     Dosage: PATIENT WAS SPLITTING HER APIXABAN 5 MG TABLETS IN HALF AND TAKING APIXABAN 2.5 MG TWICE DAILY BECAU
     Route: 048
  3. COVID-19 VACCINE NOS [Suspect]
     Active Substance: COVID-19 VACCINE NOS
     Indication: COVID-19 immunisation
     Dates: start: 202111
  4. DULCOLAX (BISACODYL) [Concomitant]
     Active Substance: BISACODYL
     Indication: Product used for unknown indication

REACTIONS (7)
  - Fall [Unknown]
  - Arthropathy [Unknown]
  - Nausea [Unknown]
  - Presyncope [Unknown]
  - Benign neoplasm [Unknown]
  - Meibomian gland dysfunction [Unknown]
  - Treatment noncompliance [Unknown]
